FAERS Safety Report 10174915 (Version 1)
Quarter: 2014Q2

REPORT INFORMATION
  Report Type: Spontaneous
  Country: CA (occurrence: CA)
  Receive Date: 20140515
  Receipt Date: 20140515
  Transmission Date: 20141212
  Serious: Yes (Other)
  Sender: FDA-Public Use
  Company Number: CA-ROCHE-1396540

PATIENT
  Sex: Female

DRUGS (5)
  1. PERJETA [Suspect]
     Indication: PRODUCT USED FOR UNKNOWN INDICATION
     Route: 042
  2. HERCEPTIN [Suspect]
     Indication: PRODUCT USED FOR UNKNOWN INDICATION
     Route: 042
  3. TAXOTERE [Suspect]
     Indication: PRODUCT USED FOR UNKNOWN INDICATION
     Route: 042
  4. COVERSYL [Concomitant]
     Route: 065
  5. ERGOCALCIFEROL [Concomitant]
     Route: 065

REACTIONS (10)
  - Cough [Unknown]
  - Dry mouth [Unknown]
  - Dyspnoea exertional [Unknown]
  - Fatigue [Unknown]
  - Hot flush [Unknown]
  - Hyperhidrosis [Unknown]
  - Hypoacusis [Unknown]
  - Neuralgia [Unknown]
  - Pain in extremity [Unknown]
  - Vomiting [Unknown]
